FAERS Safety Report 10144285 (Version 2)
Quarter: 2014Q2

REPORT INFORMATION
  Report Type: Spontaneous
  Country: US (occurrence: US)
  Receive Date: 20140430
  Receipt Date: 20140502
  Transmission Date: 20141212
  Serious: Yes (Other)
  Sender: FDA-Public Use
  Company Number: US-TEVA-478112USA

PATIENT
  Sex: Female

DRUGS (1)
  1. PARAGARD 380A [Suspect]
     Indication: CONTRACEPTION
     Route: 015
     Dates: start: 20080729, end: 20140128

REACTIONS (4)
  - Device breakage [Unknown]
  - Suprapubic pain [Unknown]
  - Pelvic pain [Unknown]
  - Discomfort [Unknown]
